FAERS Safety Report 13920810 (Version 1)
Quarter: 2017Q3

REPORT INFORMATION
  Report Type: Spontaneous
  Country: US (occurrence: US)
  Receive Date: 20170830
  Receipt Date: 20170830
  Transmission Date: 20171127
  Serious: No
  Sender: FDA-Public Use
  Company Number: US-BAYER-2017-163754

PATIENT
  Sex: Female

DRUGS (2)
  1. BAYER ASPIRIN [Concomitant]
     Active Substance: ASPIRIN
  2. ALEVE [Suspect]
     Active Substance: NAPROXEN SODIUM
     Indication: SWELLING
     Route: 065

REACTIONS (2)
  - Product use issue [None]
  - Off label use [Unknown]
